FAERS Safety Report 5553422-X (Version None)
Quarter: 2007Q4

REPORT INFORMATION
  Report Type: 
  Country: None (occurrence: None)
  Receive Date: 20071213
  Receipt Date: 20071204
  Transmission Date: 20080405
  Serious: Yes (Other)
  Sender: FDA-Public Use
  Company Number: US-BAYER-200714410BWH

PATIENT
  Age: 36 Year
  Sex: Female

DRUGS (3)
  1. AVELOX [Suspect]
     Indication: SINUSITIS
     Dosage: TOTAL DAILY DOSE: 400 MG  UNIT DOSE: 400 MG
     Route: 048
  2. LUNESTA [Concomitant]
     Dosage: TOTAL DAILY DOSE: 3 MG
  3. LEXAPRO [Concomitant]
     Dosage: TOTAL DAILY DOSE: 10 MG

REACTIONS (5)
  - ABDOMINAL PAIN UPPER [None]
  - ALTERED STATE OF CONSCIOUSNESS [None]
  - DIARRHOEA [None]
  - HYPERSENSITIVITY [None]
  - SWELLING FACE [None]
